FAERS Safety Report 7382499 (Version 13)
Quarter: 2018Q3

REPORT INFORMATION
  Report Type: Spontaneous
  Country: JP (occurrence: JP)
  Receive Date: 20100510
  Receipt Date: 20180927
  Transmission Date: 20181010
  Serious: Yes (Hospitalization, Other)
  Sender: FDA-Public Use
  Company Number: PHHY2010JP27099

PATIENT
  Age: 61 Year
  Sex: Female

DRUGS (9)
  1. XELODA [Concomitant]
     Active Substance: CAPECITABINE
     Indication: TUMOUR MARKER INCREASED
     Dosage: 2400 MG, UNK
     Route: 048
     Dates: start: 20081006
  2. FEMARA [Concomitant]
     Active Substance: LETROZOLE
     Indication: POSTOPERATIVE CARE
     Dosage: 2.5 MG, UNK
     Route: 048
     Dates: start: 20060808, end: 20070608
  3. TAXOTERE [Concomitant]
     Active Substance: DOCETAXEL
     Indication: POSTOPERATIVE CARE
     Dosage: UNK
     Route: 042
     Dates: start: 200601
  4. AROMASIN [Concomitant]
     Active Substance: EXEMESTANE
     Indication: BREAST CANCER RECURRENT
     Dosage: 25 MG, UNK
     Route: 048
     Dates: start: 200403, end: 200511
  5. FARMORUBICIN [Concomitant]
     Active Substance: EPIRUBICIN HYDROCHLORIDE
     Indication: POSTOPERATIVE CARE
     Dosage: UNK
     Route: 042
     Dates: start: 200510
  6. NOLVADEX [Concomitant]
     Active Substance: TAMOXIFEN CITRATE
     Indication: METASTASES TO LYMPH NODES
     Dosage: 20 MG, UNK
     Route: 048
     Dates: start: 20080812, end: 20081006
  7. ENDOXAN [Concomitant]
     Active Substance: CYCLOPHOSPHAMIDE
     Indication: POSTOPERATIVE CARE
     Dosage: UNK
     Route: 042
     Dates: start: 200510
  8. ZOLEDRONATE [Suspect]
     Active Substance: ZOLEDRONIC ACID
     Indication: BREAST CANCER METASTATIC
     Dosage: 4 MG, ONCE A MONTH
     Route: 041
     Dates: start: 20070609, end: 20100426
  9. HYSRON [Concomitant]
     Active Substance: MEDROXYPROGESTERONE
     Indication: TUMOUR MARKER INCREASED
     Dosage: 600 MG, UNK
     Route: 048
     Dates: start: 20070609, end: 20080811

REACTIONS (11)
  - Injury [Unknown]
  - Bone pain [Unknown]
  - Osteonecrosis of jaw [Not Recovered/Not Resolved]
  - Bone disorder [Unknown]
  - Femur fracture [Unknown]
  - Tumour marker increased [Unknown]
  - Bone callus excessive [Recovered/Resolved]
  - Pain in extremity [Recovered/Resolved]
  - Bone fragmentation [Unknown]
  - Metastases to lymph nodes [Unknown]
  - Fatigue [Unknown]

NARRATIVE: CASE EVENT DATE: 20080811
